FAERS Safety Report 6096526-8 (Version None)
Quarter: 2009Q1

REPORT INFORMATION
  Report Type: 
  Country: None (occurrence: None)
  Receive Date: 20090225
  Receipt Date: 20090225
  Transmission Date: 20090719
  Serious: Yes (Life-Threatening)
  Sender: FDA-Public Use
  Company Number: None

PATIENT
  Sex: Female
  Weight: 68.0396 kg

DRUGS (2)
  1. JANUVIA [Suspect]
     Indication: TYPE 2 DIABETES MELLITUS
     Dosage: 1 TABLET DAILY
     Dates: start: 20080117, end: 20080404
  2. JANUMET [Suspect]
     Dates: start: 20080404, end: 20090203

REACTIONS (4)
  - CELLULITIS [None]
  - EYE SWELLING [None]
  - SINUSITIS [None]
  - SWELLING FACE [None]
